FAERS Safety Report 7439157-7 (Version None)
Quarter: 2011Q2

REPORT INFORMATION
  Report Type: 
  Country: None (occurrence: None)
  Receive Date: 20110427
  Receipt Date: 20110415
  Transmission Date: 20111010
  Serious: Yes (Hospitalization, Other)
  Sender: FDA-Public Use
  Company Number: US-JNJFOC-20110407630

PATIENT
  Sex: Male
  Weight: 96.16 kg

DRUGS (1)
  1. DURAGESIC-50 [Suspect]
     Indication: PAIN IN EXTREMITY
     Route: 062

REACTIONS (7)
  - MYOCARDIAL INFARCTION [None]
  - BLOOD CHOLESTEROL INCREASED [None]
  - OEDEMA [None]
  - HEART RATE INCREASED [None]
  - WITHDRAWAL SYNDROME [None]
  - PROSTATOMEGALY [None]
  - DELIRIUM TREMENS [None]
